FAERS Safety Report 7808579-4 (Version None)
Quarter: 2011Q4

REPORT INFORMATION
  Report Type: 
  Country: None (occurrence: None)
  Receive Date: 20111012
  Receipt Date: 20111007
  Transmission Date: 20120403
  Serious: Yes (Other)
  Sender: FDA-Public Use
  Company Number: US-PFIZER INC-2011240210

PATIENT
  Sex: Male
  Weight: 83.9 kg

DRUGS (2)
  1. NAPROXEN (ALEVE) [Concomitant]
     Indication: TOOTHACHE
     Dosage: UNK
  2. IBUPROFEN (ADVIL) [Suspect]
     Indication: TOOTHACHE
     Dosage: UNK

REACTIONS (2)
  - EXPIRED DRUG ADMINISTERED [None]
  - GASTRIC HAEMORRHAGE [None]
